FAERS Safety Report 23284768 (Version 1)
Quarter: 2023Q4

REPORT INFORMATION
  Report Type: Report from Study
  Country: US (occurrence: US)
  Receive Date: 20231211
  Receipt Date: 20231211
  Transmission Date: 20240110
  Serious: Yes (Death)
  Sender: FDA-Public Use
  Company Number: US-MIRATI-MT2023PM05505

PATIENT
  Sex: Male
  Weight: 94.785 kg

DRUGS (12)
  1. KRAZATI [Suspect]
     Active Substance: ADAGRASIB
     Indication: Lung neoplasm malignant
     Dosage: 600 MG, BID
     Route: 048
     Dates: start: 20231117
  2. ALBUTEROL [Concomitant]
     Active Substance: ALBUTEROL
     Dosage: UNK
  3. ALLOPURINOL [Concomitant]
     Active Substance: ALLOPURINOL
  4. AMMONIUM LACTATE [Concomitant]
     Active Substance: AMMONIUM LACTATE
  5. CLOTRIMAZOLE [Concomitant]
     Active Substance: CLOTRIMAZOLE
  6. DECADRON [Concomitant]
     Active Substance: DEXAMETHASONE
  7. DEXAMETHASONE [Concomitant]
     Active Substance: DEXAMETHASONE
  8. FOLIC ACID [Concomitant]
     Active Substance: FOLIC ACID
  9. FULPHILA [Concomitant]
     Active Substance: PEGFILGRASTIM-JMDB
  10. OMEPRAZOLE [Concomitant]
     Active Substance: OMEPRAZOLE
  11. ONDANSETRON [Concomitant]
     Active Substance: ONDANSETRON
  12. OXYCODONE [Concomitant]
     Active Substance: OXYCODONE

REACTIONS (1)
  - Death [Fatal]
